FAERS Safety Report 6509877-7 (Version None)
Quarter: 2009Q4

REPORT INFORMATION
  Report Type: 
  Country: None (occurrence: None)
  Receive Date: 20091217
  Receipt Date: 20091215
  Transmission Date: 20100525
  Serious: Yes (Hospitalization)
  Sender: FDA-Public Use
  Company Number: 2009SP040874

PATIENT
  Age: 40 Year
  Sex: Male
  Weight: 77 kg

DRUGS (6)
  1. PEG-INTRON [Suspect]
     Indication: HEPATITIS C
     Dosage: 0.5 MCG/KG;QW;SC
     Route: 058
     Dates: start: 20090602, end: 20091210
  2. RIBAVIRIN [Suspect]
     Indication: HEPATITIS C
     Dosage: 1000 MG;QD;PO
     Route: 048
     Dates: start: 20090602, end: 20091210
  3. SUBUTEX [Concomitant]
  4. VITAMIN B1 AND B6 [Concomitant]
  5. NOCTRAN [Concomitant]
  6. PARACETAMOL [Concomitant]

REACTIONS (4)
  - FALL [None]
  - HAEMATURIA [None]
  - RIB FRACTURE [None]
  - THROMBOCYTOPENIA [None]
